FAERS Safety Report 18598598 (Version 1)
Quarter: 2020Q4

REPORT INFORMATION
  Report Type: Other
  Country: PL (occurrence: PL)
  Receive Date: 20201210
  Receipt Date: 20201210
  Transmission Date: 20210114
  Serious: Yes (Other)
  Sender: FDA-Public Use
  Company Number: PL-DEXPHARM-20201085

PATIENT
  Age: 69 Year
  Sex: Male

DRUGS (3)
  1. METHYLPHENIDATE. [Concomitant]
     Active Substance: METHYLPHENIDATE
     Route: 048
  2. METHYLPHENIDATE. [Concomitant]
     Active Substance: METHYLPHENIDATE
     Indication: SOMNOLENCE
     Dosage: IN THE MORNING
     Route: 048
  3. DONEPEZIL 10 MG NON DEXCEL PRODUCT [Suspect]
     Active Substance: DONEPEZIL
     Indication: DEMENTIA ALZHEIMER^S TYPE
     Dosage: IN THE EVENING

REACTIONS (4)
  - Irritability [Not Recovered/Not Resolved]
  - Drug ineffective [Unknown]
  - Sleep disorder [Not Recovered/Not Resolved]
  - Somnolence [Not Recovered/Not Resolved]
